FAERS Safety Report 6545752-X (Version None)
Quarter: 2010Q1

REPORT INFORMATION
  Report Type: 
  Country: None (occurrence: None)
  Receive Date: 20100119
  Receipt Date: 20100108
  Transmission Date: 20100710
  Serious: No
  Sender: FDA-Public Use
  Company Number: 20097506

PATIENT
  Sex: Male

DRUGS (1)
  1. LIORESAL [Suspect]
     Indication: MUSCLE SPASTICITY
     Dosage: 76 MCG, DAILY, INTRATHECAL, FLEX MOD
     Route: 037

REACTIONS (5)
  - ABASIA [None]
  - ABSCESS RUPTURE [None]
  - DEVICE MALFUNCTION [None]
  - INFECTION [None]
  - OVERDOSE [None]
